FAERS Safety Report 13578584 (Version 1)
Quarter: 2017Q2

REPORT INFORMATION
  Report Type: Spontaneous
  Country: US (occurrence: US)
  Receive Date: 20170524
  Receipt Date: 20170524
  Transmission Date: 20170830
  Serious: No
  Sender: FDA-Public Use
  Company Number: US-SUNOVION-2017SUN000349

PATIENT

DRUGS (3)
  1. LATUDA [Suspect]
     Active Substance: LURASIDONE HYDROCHLORIDE
     Dosage: UNK
     Route: 048
  2. LATUDA [Suspect]
     Active Substance: LURASIDONE HYDROCHLORIDE
     Dosage: 160 MG, UNK
     Route: 048
  3. LATUDA [Suspect]
     Active Substance: LURASIDONE HYDROCHLORIDE
     Dosage: UNK
     Route: 048

REACTIONS (10)
  - Negative thoughts [Unknown]
  - Hallucination, auditory [Recovering/Resolving]
  - Bradyphrenia [Not Recovered/Not Resolved]
  - Stress [Unknown]
  - Crying [Unknown]
  - Galactorrhoea [Not Recovered/Not Resolved]
  - Paranoia [Unknown]
  - Drug administration error [Unknown]
  - Depression [Unknown]
  - Anxiety [Unknown]
